FAERS Safety Report 20921068 (Version 1)
Quarter: 2022Q2

REPORT INFORMATION
  Report Type: Spontaneous
  Country: CA (occurrence: None)
  Receive Date: 20220606
  Receipt Date: 20220606
  Transmission Date: 20220721
  Serious: No
  Sender: FDA-Public Use
  Company Number: None

PATIENT
  Age: 76 Year
  Sex: Female
  Weight: 76.5 kg

DRUGS (7)
  1. OZEMPIC [Suspect]
     Active Substance: SEMAGLUTIDE
     Indication: Type 2 diabetes mellitus
     Dosage: OTHER QUANTITY : 6 INJECTION(S);?OTHER FREQUENCY : ONCE WEEKLY;?OTHER ROUTE : INJECTION IN STOMACH;?
     Route: 050
     Dates: start: 20220511, end: 20220601
  2. METOPROLOL [Concomitant]
     Active Substance: METOPROLOL
  3. amilaride [Concomitant]
  4. FLUOXETINE HYDROCHLORIDE [Concomitant]
     Active Substance: FLUOXETINE HYDROCHLORIDE
  5. LORAZEPAM [Concomitant]
     Active Substance: LORAZEPAM
  6. VENTOLIN [Concomitant]
     Active Substance: ALBUTEROL SULFATE
  7. SENOKOT [Concomitant]
     Active Substance: SENNOSIDES

REACTIONS (4)
  - Oropharyngeal pain [None]
  - Dysphagia [None]
  - Neck pain [None]
  - Cough [None]

NARRATIVE: CASE EVENT DATE: 20220511
